FAERS Safety Report 5917153-6 (Version None)
Quarter: 2008Q4

REPORT INFORMATION
  Report Type: 
  Country: None (occurrence: None)
  Receive Date: 20081010
  Receipt Date: 20081010
  Transmission Date: 20090506
  Serious: No
  Sender: FDA-Public Use
  Company Number: None

PATIENT
  Sex: Female
  Weight: 79.8331 kg

DRUGS (1)
  1. FOSAMAX [Suspect]

REACTIONS (2)
  - ABDOMINAL PAIN [None]
  - PRODUCT QUALITY ISSUE [None]
